FAERS Safety Report 22585766 (Version 1)
Quarter: 2023Q2

REPORT INFORMATION
  Report Type: Spontaneous
  Country: US (occurrence: US)
  Receive Date: 20230610
  Receipt Date: 20230610
  Transmission Date: 20230722
  Serious: No
  Sender: FDA-Public Use
  Company Number: US-SA-SAC20230609000246

PATIENT
  Sex: Female

DRUGS (1)
  1. AUBAGIO [Suspect]
     Active Substance: TERIFLUNOMIDE
     Indication: Multiple sclerosis
     Dosage: UNK UNK, QD
     Route: 048
     Dates: start: 201804

REACTIONS (4)
  - Fatigue [Unknown]
  - Vision blurred [Unknown]
  - Condition aggravated [Unknown]
  - Hyperventilation [Unknown]

NARRATIVE: CASE EVENT DATE: 20221201
